FAERS Safety Report 25175924 (Version 1)
Quarter: 2025Q2

REPORT INFORMATION
  Report Type: Spontaneous
  Country: CN (occurrence: CN)
  Receive Date: 20250409
  Receipt Date: 20250409
  Transmission Date: 20250716
  Serious: Yes (Death, Hospitalization, Other)
  Sender: NOVITIUM PHARMA
  Company Number: CN-NOVITIUMPHARMA-2025CNNVP00863

PATIENT
  Age: 15 Year
  Sex: Male

DRUGS (12)
  1. DEXAMETHASONE [Suspect]
     Active Substance: DEXAMETHASONE
     Indication: Brain oedema
  2. DEXAMETHASONE [Suspect]
     Active Substance: DEXAMETHASONE
     Indication: Acute lymphocytic leukaemia
  3. VINCRISTINE [Concomitant]
     Active Substance: VINCRISTINE
     Indication: Acute lymphocytic leukaemia
  4. METHOTREXATE [Concomitant]
     Active Substance: METHOTREXATE
     Indication: Acute lymphocytic leukaemia
  5. IMATINIB [Concomitant]
     Active Substance: IMATINIB
     Indication: Acute lymphocytic leukaemia
  6. DASATINIB [Concomitant]
     Active Substance: DASATINIB
     Indication: Acute lymphocytic leukaemia
  7. METHYLPREDNISOLONE [Concomitant]
     Active Substance: METHYLPREDNISOLONE
     Indication: Immunosuppressant drug therapy
  8. CYCLOSPORINE [Concomitant]
     Active Substance: CYCLOSPORINE
     Indication: Immunosuppressant drug therapy
  9. GANCICLOVIR [Concomitant]
     Active Substance: GANCICLOVIR
     Indication: Acute lymphocytic leukaemia
  10. FOSCARNET [Concomitant]
     Active Substance: FOSCARNET
     Indication: Acute lymphocytic leukaemia
  11. MANNITOL [Concomitant]
     Active Substance: MANNITOL
     Indication: Intracranial pressure increased
  12. Immune-Globulin [Concomitant]
     Indication: Acute lymphocytic leukaemia

REACTIONS (4)
  - Cytomegalovirus viraemia [Fatal]
  - Encephalitis cytomegalovirus [Fatal]
  - Coma [Fatal]
  - Drug ineffective [Unknown]
